FAERS Safety Report 9640364 (Version 1)
Quarter: 2013Q4

REPORT INFORMATION
  Report Type: Report from Study
  Country: CA (occurrence: CA)
  Receive Date: 20131023
  Receipt Date: 20131023
  Transmission Date: 20140711
  Serious: Yes (Hospitalization)
  Sender: FDA-Public Use
  Company Number: CA-UCBSA-100923

PATIENT
  Age: 58 Year
  Sex: Female
  Weight: 64 kg

DRUGS (6)
  1. CIMZIA [Suspect]
     Indication: RHEUMATOID ARTHRITIS
     Dosage: EVERY 2 WEEKS X 3
     Route: 058
     Dates: start: 20130506, end: 20130603
  2. CIMZIA [Suspect]
     Indication: RHEUMATOID ARTHRITIS
     Route: 058
     Dates: start: 20130617, end: 20130923
  3. MTX [Concomitant]
     Indication: RHEUMATOID ARTHRITIS
     Route: 058
  4. PREVACID [Concomitant]
     Indication: GASTRITIS PROPHYLAXIS
     Route: 048
  5. CELEBREX [Concomitant]
     Indication: RHEUMATOID ARTHRITIS
     Route: 048
  6. WELLBUTRIN [Concomitant]
     Indication: SMOKING CESSATION THERAPY
     Route: 048

REACTIONS (2)
  - Pneumonia [Recovering/Resolving]
  - Chronic obstructive pulmonary disease [Recovering/Resolving]
